FAERS Safety Report 7591592-2 (Version None)
Quarter: 2011Q3

REPORT INFORMATION
  Report Type: 
  Country: None (occurrence: None)
  Receive Date: 20110701
  Receipt Date: 20110701
  Transmission Date: 20111222
  Serious: Yes (Hospitalization)
  Sender: FDA-Public Use
  Company Number: None

PATIENT
  Sex: Male
  Weight: 134 kg

DRUGS (8)
  1. AMLODIPINE BESYLATE [Concomitant]
  2. LEVAQUIN [Concomitant]
  3. LENALIDOMIDE [Suspect]
     Indication: HODGKIN'S DISEASE
     Dosage: 25 MG Q DAY PO
     Route: 048
     Dates: start: 20110112
  4. GLIMEPIRIDE [Concomitant]
  5. HYDROCHLOROTHIAZIDE [Concomitant]
  6. LOVASTATIN [Concomitant]
  7. ATENOLOL [Concomitant]
  8. ENALAPRIL MALEATE [Concomitant]

REACTIONS (7)
  - PNEUMONIA FUNGAL [None]
  - NEUTROPHIL COUNT DECREASED [None]
  - PLATELET COUNT DECREASED [None]
  - PANCYTOPENIA [None]
  - FEBRILE NEUTROPENIA [None]
  - PYREXIA [None]
  - BACTERIAL INFECTION [None]
